FAERS Safety Report 4708500-1 (Version None)
Quarter: 2005Q3

REPORT INFORMATION
  Report Type: 
  Country: None (occurrence: None)
  Receive Date: 20050707
  Receipt Date: 20050610
  Transmission Date: 20060218
  Serious: Yes (Death, Hospitalization)
  Sender: FDA-Public Use
  Company Number: US-BOEHRINGER INGELHEIM PHARMACEUTICALS, INC.-2005-BP-09882RO

PATIENT
  Sex: Female
  Weight: 81.8 kg

DRUGS (14)
  1. PREDNISONE [Suspect]
     Indication: METASTASES TO CENTRAL NERVOUS SYSTEM
     Dosage: 20 MG QD ORAL
     Route: 048
  2. TEMODAR [Suspect]
     Indication: METASTASES TO CENTRAL NERVOUS SYSTEM
     Dosage: 75 MG/M^2 QD ORAL
     Route: 048
     Dates: start: 20050317, end: 20050404
  3. DECADRON [Suspect]
     Indication: METASTASES TO CENTRAL NERVOUS SYSTEM
     Dosage: 4 MG QD
  4. ATROVENT [Suspect]
     Indication: PNEUMONIA
  5. ADVAIR DISKUS 100/50 [Concomitant]
     Dosage: 250/50 BID
  6. CARDIZEM [Concomitant]
     Dosage: 120 MG QD
  7. PAXIL [Concomitant]
     Dosage: 20 MG QD
  8. K-LYTE [Concomitant]
     Dosage: 25 MEQ QD
  9. PROTONIX [Concomitant]
     Dosage: 40 MG QD
     Route: 048
  10. VITRON-C [Concomitant]
     Dosage: 1 QD
  11. TYLENOL W/ CODEINE NO. 3 [Concomitant]
  12. AMBIEN [Concomitant]
     Dosage: PRN
  13. TYLENOL [Concomitant]
     Dosage: PRN
  14. PHENERGAN [Concomitant]

REACTIONS (19)
  - ACUTE PRERENAL FAILURE [None]
  - ASTHENIA [None]
  - CANDIDIASIS [None]
  - CHEST DISCOMFORT [None]
  - DEEP VEIN THROMBOSIS [None]
  - DEHYDRATION [None]
  - DIABETES MELLITUS INADEQUATE CONTROL [None]
  - DYSLIPIDAEMIA [None]
  - DYSPNOEA [None]
  - DYSSTASIA [None]
  - HAEMATOCHEZIA [None]
  - HYPERGLYCAEMIA [None]
  - MENTAL STATUS CHANGES [None]
  - ORAL CANDIDIASIS [None]
  - PNEUMONIA [None]
  - POLYURIA [None]
  - REFUSAL OF TREATMENT BY RELATIVE [None]
  - SPUTUM CULTURE POSITIVE [None]
  - STAPHYLOCOCCAL INFECTION [None]
